FAERS Safety Report 8385930-0 (Version None)
Quarter: 2012Q2

REPORT INFORMATION
  Report Type: 
  Country: None (occurrence: None)
  Receive Date: 20120525
  Receipt Date: 20120521
  Transmission Date: 20120825
  Serious: Yes (Hospitalization, Other)
  Sender: FDA-Public Use
  Company Number: JP-JNJFOC-20120501520

PATIENT

DRUGS (2)
  1. SIMPONI [Suspect]
     Indication: RHEUMATOID ARTHRITIS
     Route: 058
     Dates: start: 20120404
  2. AZULFIDINE [Concomitant]
     Route: 048

REACTIONS (4)
  - DECREASED APPETITE [None]
  - MALAISE [None]
  - INTERSTITIAL LUNG DISEASE [None]
  - HEPATITIS B [None]
